FAERS Safety Report 24074365 (Version 2)
Quarter: 2024Q3

REPORT INFORMATION
  Report Type: Report from Study
  Country: US (occurrence: US)
  Receive Date: 20240710
  Receipt Date: 20240714
  Transmission Date: 20241016
  Serious: Yes (Death)
  Sender: ABBVIE
  Company Number: US-ABBVIE-5832814

PATIENT
  Age: 82 Year
  Sex: Male

DRUGS (10)
  1. VENCLEXTA [Suspect]
     Active Substance: VENETOCLAX
     Indication: Acute myeloid leukaemia
     Dosage: TAKE 4 TABLETS 400 MG BY MOUTH ONCE DAILY ON DAYS ONE TO SEVEN OF A 28 DAY CYCLE WITH FOOD AND FU...
     Route: 048
  2. ACYCLOVIR [Concomitant]
     Active Substance: ACYCLOVIR
     Indication: Product used for unknown indication
     Dosage: 400 MG TABLET TAKE 1 BY MOUTH TWICE DAILY (MOCK DATE: DOES NOT RECALL ACTUAL MONTH/DAY/ YEAR
     Route: 048
  3. CRESTOR [Concomitant]
     Active Substance: ROSUVASTATIN CALCIUM
     Indication: Product used for unknown indication
     Dosage: 20 MG TABLET TAKE 1 PO ONCE WEEKLY ON WEDNESDAYS (MOCK DATE, DOES NOT RECALL ACTUAL MONTH/DAY/YEAR)
     Route: 048
  4. ALBUTEROL SULFATE [Concomitant]
     Active Substance: ALBUTEROL SULFATE
     Indication: Product used for unknown indication
     Dosage: 90 MCG/ACTUATION AEROSOL INHALER TAKE 1 PUFF INHALATION EVERY 6 HOURS PRN (MOCK DATE, DOES NOT RE...
     Route: 045
  5. ELIQUIS [Concomitant]
     Active Substance: APIXABAN
     Indication: Product used for unknown indication
     Dosage: 5 MG TABLET TAKE 1 BY MOUTH TWICE DAILY (MOCK DATE: DOES NOT RECALL ACTUAL MONTH/DAY/ YEAR)
     Route: 048
  6. FLOMAX [Concomitant]
     Active Substance: TAMSULOSIN HYDROCHLORIDE
     Indication: Product used for unknown indication
     Dosage: 0.4 MG CAPSULE ) TAKE 1 PO ONCE DAILY (MOCK DATE, DOES NOT RECALL ACTUAL MONTH/DAY/YEAR)
     Route: 048
  7. ONDANSETRON [Concomitant]
     Active Substance: ONDANSETRON
     Indication: Product used for unknown indication
     Dosage: 4 MG DISINTEGRATING TABLET TAKE 1 BY MOUTH EVERY 4 HOURS PM (MOCK DATE, DOES NOT RECALL ACTUAL MO...
     Route: 048
  8. PRED FORTE [Concomitant]
     Active Substance: PREDNISOLONE ACETATE
     Indication: Product used for unknown indication
     Dosage: 1 % EYE DROPS, SUSPENSION INSTILL 1 DROP INTO THE RIGHT EYE TWICE DAILY (MOCK DATE, DOES NOT RECA...
     Route: 047
  9. PROTONIX [Concomitant]
     Active Substance: PANTOPRAZOLE SODIUM
     Indication: Product used for unknown indication
     Dosage: 40 MG TABLET DELAYED RELEASETAKE 1 BY MOUTH TWICE DAILY (MOCK DATA, DOES NOT? RECALL ACTUAL MONTH...
     Route: 048
  10. SPIRIVA [Concomitant]
     Active Substance: TIOTROPIUM BROMIDE MONOHYDRATE
     Indication: Product used for unknown indication
     Dosage: 18 MCG AND INHALATION CAPSULESTAKE 1 PUFF INHALATION ONCE DAILY (MOCK DATE, DOES NOT RECALL ACTUA...
     Route: 048

REACTIONS (1)
  - Death [Fatal]

NARRATIVE: CASE EVENT DATE: 20240606
